FAERS Safety Report 13407497 (Version 1)
Quarter: 2017Q2

REPORT INFORMATION
  Report Type: Spontaneous
  Country: CA (occurrence: CA)
  Receive Date: 20170405
  Receipt Date: 20170405
  Transmission Date: 20170830
  Serious: Yes (Other)
  Sender: FDA-Public Use
  Company Number: CA-HLSUS-2017-CA-000283

PATIENT
  Sex: Male
  Weight: 92 kg

DRUGS (2)
  1. CLOZARIL [Suspect]
     Active Substance: CLOZAPINE
     Indication: SCHIZOPHRENIA
     Dosage: 200 MG
  2. LOXAPINE. [Suspect]
     Active Substance: LOXAPINE
     Dosage: 12.5 MG

REACTIONS (2)
  - Priapism [Unknown]
  - Infection [Unknown]
